FAERS Safety Report 10441041 (Version 5)
Quarter: 2014Q4

REPORT INFORMATION
  Report Type: Report from Study
  Country: US (occurrence: US)
  Receive Date: 20140909
  Receipt Date: 20141231
  Transmission Date: 20150528
  Serious: Yes (Other)
  Sender: FDA-Public Use
  Company Number: US-ASTELLAS-2014US012003

PATIENT
  Age: 57 Year
  Sex: Male

DRUGS (25)
  1. ASPIRIN. [Concomitant]
     Active Substance: ASPIRIN
     Indication: PRODUCT USED FOR UNKNOWN INDICATION
     Route: 048
  2. VFEND [Concomitant]
     Active Substance: VORICONAZOLE
     Indication: PRODUCT USED FOR UNKNOWN INDICATION
     Route: 048
  3. PHOSLO [Concomitant]
     Active Substance: CALCIUM ACETATE
     Indication: PRODUCT USED FOR UNKNOWN INDICATION
     Dosage: UNK, TWICE DAILY
     Route: 065
  4. OXYCONTIN [Concomitant]
     Active Substance: OXYCODONE HYDROCHLORIDE
     Indication: PRODUCT USED FOR UNKNOWN INDICATION
     Route: 048
  5. TACROLIMUS. [Suspect]
     Active Substance: TACROLIMUS
     Indication: RENAL TRANSPLANT
     Dosage: 3MG, 2 MG IN AM, 1 MG IN PM
     Route: 048
     Dates: start: 20131219
  6. ZYVOX [Concomitant]
     Active Substance: LINEZOLID
     Indication: PRODUCT USED FOR UNKNOWN INDICATION
     Route: 048
  7. BACTRIM [Concomitant]
     Active Substance: SULFAMETHOXAZOLE\TRIMETHOPRIM
     Indication: PRODUCT USED FOR UNKNOWN INDICATION
     Dosage: 1 TABLET, THRICE WEEKLY
     Route: 048
  8. ZOVIRAX [Concomitant]
     Active Substance: ACYCLOVIR
     Route: 048
  9. DAZIDOX [Concomitant]
     Route: 048
  10. LINEZOLID. [Concomitant]
     Active Substance: LINEZOLID
     Indication: WOUND
     Dosage: UNK, UNKNOWN FREQ.
     Route: 065
     Dates: start: 201408
  11. LOPROX [Concomitant]
     Active Substance: CICLOPIROX\CICLOPIROX OLAMINE
     Indication: PRODUCT USED FOR UNKNOWN INDICATION
     Dosage: 0.77 %, UNKNOWN FREQ.
     Route: 065
  12. COLACE [Concomitant]
     Active Substance: DOCUSATE SODIUM
     Indication: CONSTIPATION
     Dosage: 100 MG, AS NEEDED (TWICE DAILY)
     Route: 048
     Dates: end: 20140917
  13. ASKP1240 [Suspect]
     Active Substance: INVESTIGATIONAL PRODUCT
     Indication: RENAL TRANSPLANT
     Route: 042
     Dates: start: 20131218, end: 20140910
  14. ZOVIRAX [Concomitant]
     Active Substance: ACYCLOVIR
     Indication: PRODUCT USED FOR UNKNOWN INDICATION
     Route: 048
  15. TENORMIN [Concomitant]
     Active Substance: ATENOLOL
     Indication: PRODUCT USED FOR UNKNOWN INDICATION
     Route: 048
  16. MEVACOR [Concomitant]
     Active Substance: LOVASTATIN
     Indication: PRODUCT USED FOR UNKNOWN INDICATION
     Route: 048
  17. DAZIDOX [Concomitant]
     Indication: PAIN
     Dosage: 10 MG, EVERY 6 HOURS PRN
     Route: 048
  18. DELTASONE                          /00016001/ [Concomitant]
     Indication: PRODUCT USED FOR UNKNOWN INDICATION
     Route: 048
  19. CIPRO                              /00697201/ [Concomitant]
     Active Substance: CIPROFLOXACIN
     Indication: WOUND
     Dosage: UNK, UNKNOWN FREQ.
     Route: 065
     Dates: start: 201408
  20. XANAX [Concomitant]
     Active Substance: ALPRAZOLAM
     Indication: PRODUCT USED FOR UNKNOWN INDICATION
     Route: 048
  21. BASILIXIMAB [Suspect]
     Active Substance: BASILIXIMAB
     Indication: RENAL TRANSPLANT
     Dosage: 20 MG, TWICE
     Route: 042
     Dates: start: 20131218, end: 20131221
  22. AUGMENTAN                          /00756801/ [Concomitant]
     Active Substance: AMOXICILLIN\CLAVULANATE POTASSIUM
     Indication: PRODUCT USED FOR UNKNOWN INDICATION
     Dosage: 875-125 MG, EVERY 12 HOURS
     Route: 048
  23. VANCOMYCIN [Concomitant]
     Active Substance: VANCOMYCIN
     Indication: WOUND
     Dosage: UNK, UNKNOWN FREQ.
     Route: 065
     Dates: start: 201408
  24. ZOSYN [Concomitant]
     Active Substance: PIPERACILLIN SODIUM\TAZOBACTAM SODIUM
     Indication: WOUND
     Dosage: UNK, UNKNOWN FREQ.
     Route: 065
     Dates: start: 201408
  25. XARELTO [Concomitant]
     Active Substance: RIVAROXABAN
     Indication: PRODUCT USED FOR UNKNOWN INDICATION
     Route: 048

REACTIONS (1)
  - Wound [Recovering/Resolving]

NARRATIVE: CASE EVENT DATE: 20140902
